FAERS Safety Report 24924633 (Version 1)
Quarter: 2025Q1

REPORT INFORMATION
  Report Type: Report from Study
  Country: US (occurrence: US)
  Receive Date: 20250204
  Receipt Date: 20250204
  Transmission Date: 20250409
  Serious: No
  Sender: EXELIXIS
  Company Number: US-EXELIXIS-CABO-24075323

PATIENT
  Age: 65 Year
  Sex: Male

DRUGS (2)
  1. CABOMETYX [Suspect]
     Active Substance: CABOZANTINIB S-MALATE
     Indication: Renal cancer
     Route: 048
  2. CABOMETYX [Suspect]
     Active Substance: CABOZANTINIB S-MALATE
     Dosage: 20 MG, QD
     Route: 048

REACTIONS (9)
  - Blood pressure increased [Unknown]
  - Hyperkeratosis [Unknown]
  - Headache [Unknown]
  - Diarrhoea [Unknown]
  - Weight decreased [Not Recovered/Not Resolved]
  - Muscle spasms [Unknown]
  - Eating disorder [Recovering/Resolving]
  - Adrenal disorder [Unknown]
  - Vision blurred [Unknown]

NARRATIVE: CASE EVENT DATE: 20240403
